FAERS Safety Report 7233031-7 (Version None)
Quarter: 2011Q1

REPORT INFORMATION
  Report Type: 
  Country: None (occurrence: None)
  Receive Date: 20110119
  Receipt Date: 20110105
  Transmission Date: 20110831
  Serious: No
  Sender: FDA-Public Use
  Company Number: US-B.I. PHARMACEUTICALS,INC./RIDGEFIELD-2011-BP-00734BP

PATIENT
  Age: 80 Year
  Sex: Female

DRUGS (6)
  1. SYNTHROID [Concomitant]
  2. DIGOXIN [Concomitant]
  3. EXELON [Concomitant]
  4. PRADAXA [Suspect]
     Indication: ATRIAL FIBRILLATION
  5. DILTIAZEM [Concomitant]
  6. NAMENDA [Concomitant]

REACTIONS (4)
  - MYALGIA [None]
  - COAGULOPATHY [None]
  - PAIN [None]
  - ARTHRALGIA [None]
